FAERS Safety Report 5401518-5 (Version None)
Quarter: 2007Q3

REPORT INFORMATION
  Report Type: 
  Country: None (occurrence: None)
  Receive Date: 20070726
  Receipt Date: 20070716
  Transmission Date: 20080115
  Serious: Yes (Other)
  Sender: FDA-Public Use
  Company Number: 07H-161-0312899-00

PATIENT
  Age: 68 Year
  Sex: Female

DRUGS (4)
  1. DOBUTAMINE IN DEXTROSE 5% [Suspect]
     Indication: LEFT VENTRICULAR DYSFUNCTION
     Dosage: 2-10 MCG/KG/MIN
  2. CARVEDILOL [Suspect]
     Indication: HYPERTENSION
  3. DOPAMINE HCL [Concomitant]
  4. ACTIVASE [Concomitant]

REACTIONS (2)
  - DRUG INTERACTION [None]
  - HYPOTENSION [None]
